FAERS Safety Report 11717099 (Version 1)
Quarter: 2015Q4

REPORT INFORMATION
  Report Type: Spontaneous
  Country: NO (occurrence: NO)
  Receive Date: 20151109
  Receipt Date: 20151109
  Transmission Date: 20160304
  Serious: Yes (Other)
  Sender: FDA-Public Use
  Company Number: NO-ELI_LILLY_AND_COMPANY-NO201510009520

PATIENT
  Age: 56 Year
  Sex: Male

DRUGS (9)
  1. CYRAMZA [Suspect]
     Active Substance: RAMUCIRUMAB
     Indication: METASTATIC NEOPLASM
     Dosage: 720 MG, CYCLICAL
     Route: 051
     Dates: start: 20150907, end: 20150907
  2. ZANTAC [Concomitant]
     Active Substance: RANITIDINE HYDROCHLORIDE
     Dosage: 300 MG, CYCLICAL
     Route: 048
     Dates: start: 20150907
  3. MEDROL [Concomitant]
     Active Substance: METHYLPREDNISOLONE
     Indication: PREMEDICATION
     Dosage: 16 MG, CYCLICAL
     Route: 048
     Dates: start: 20150906
  4. ZYRTEC [Concomitant]
     Active Substance: CETIRIZINE HYDROCHLORIDE
     Dosage: 10 MG, PRN
     Route: 048
     Dates: start: 20150907
  5. LOPERAMIDE [Concomitant]
     Active Substance: LOPERAMIDE
     Indication: DIARRHOEA
     Dosage: 2 MG, PRN
     Route: 048
     Dates: start: 20150902
  6. AFIPRAN [Concomitant]
     Indication: NAUSEA
     Dosage: 10 MG, PRN
     Route: 048
     Dates: start: 20150902
  7. TAXOL [Concomitant]
     Active Substance: PACLITAXEL
     Indication: METASTATIC NEOPLASM
     Dosage: UNK UNK, CYCLICAL
     Route: 051
     Dates: start: 20150907
  8. NEULASTA [Concomitant]
     Active Substance: PEGFILGRASTIM
     Dosage: UNK, CYCLICAL
     Route: 065
     Dates: start: 20151006
  9. CYRAMZA [Suspect]
     Active Substance: RAMUCIRUMAB
     Dosage: 580 MG, SINGLE
     Route: 051
     Dates: start: 20151005, end: 20151005

REACTIONS (3)
  - White blood cell count increased [Recovering/Resolving]
  - Neutropenia [Unknown]
  - Uveitis [Recovering/Resolving]

NARRATIVE: CASE EVENT DATE: 20151010
